FAERS Safety Report 8047445-9 (Version None)
Quarter: 2012Q1

REPORT INFORMATION
  Report Type: 
  Country: None (occurrence: None)
  Receive Date: 20120116
  Receipt Date: 20120106
  Transmission Date: 20120608
  Serious: Yes (Other)
  Sender: FDA-Public Use
  Company Number: US-JNJFOC-20120102296

PATIENT
  Sex: Male
  Weight: 108.86 kg

DRUGS (2)
  1. STELARA [Suspect]
     Dosage: MAINTENANCE DOSE
     Route: 058
  2. STELARA [Suspect]
     Indication: PSORIASIS
     Route: 058
     Dates: start: 20111101

REACTIONS (9)
  - MUSCULOSKELETAL DISCOMFORT [None]
  - VISUAL IMPAIRMENT [None]
  - SKIN EXFOLIATION [None]
  - SKIN CHAPPED [None]
  - ERYTHEMA [None]
  - FATIGUE [None]
  - DIZZINESS [None]
  - INFLUENZA LIKE ILLNESS [None]
  - PRURITUS [None]
